FAERS Safety Report 5926100-2 (Version None)
Quarter: 2008Q4

REPORT INFORMATION
  Report Type: 
  Country: None (occurrence: None)
  Receive Date: 20081016
  Receipt Date: 20081006
  Transmission Date: 20090506
  Serious: Yes (Hospitalization)
  Sender: FDA-Public Use
  Company Number: CIP08002074

PATIENT
  Age: 89 Year
  Sex: Male

DRUGS (5)
  1. RISEDRONATE SODIUM [Suspect]
     Indication: FRACTURE
     Dosage: 17.5 MG ONCE WEEKLY, ORAL
     Route: 048
     Dates: start: 20080717, end: 20080821
  2. RISEDRONATE SODIUM [Suspect]
     Indication: OSTEOPOROSIS
     Dosage: 17.5 MG ONCE WEEKLY, ORAL
     Route: 048
     Dates: start: 20080717, end: 20080821
  3. BUFFERIN /00002701/ (ACETYLSALICYLIC ACID) [Concomitant]
  4. NEUROVITAN /00280501/ (CYANOCOBALAMIN, OCTOTIAMINE, PYRIDOXINE HYDROCH [Concomitant]
  5. THYRADIN (THYROID) [Concomitant]

REACTIONS (7)
  - ASCITES [None]
  - BLOOD CHOLESTEROL INCREASED [None]
  - BLOOD TRIGLYCERIDES INCREASED [None]
  - GENERALISED OEDEMA [None]
  - HYPOALBUMINAEMIA [None]
  - NEPHROTIC SYNDROME [None]
  - PLEURAL EFFUSION [None]
